FAERS Safety Report 4723252-7 (Version None)
Quarter: 2005Q3

REPORT INFORMATION
  Report Type: 
  Country: None (occurrence: None)
  Receive Date: 20050719
  Receipt Date: 20040831
  Transmission Date: 20060218
  Serious: Yes (Hospitalization)
  Sender: FDA-Public Use
  Company Number: 204062

PATIENT
  Age: 27 Year
  Sex: Female
  Weight: 77.1115 kg

DRUGS (2)
  1. AVONEX [Suspect]
     Dosage: 30 UG;QW;IM
     Route: 030
     Dates: start: 19990101, end: 20040601
  2. AVONEX [Suspect]
     Dosage: 30 UG;QW;IM
     Route: 030
     Dates: start: 20040601, end: 20040801

REACTIONS (3)
  - GASTRIC DISORDER [None]
  - MULTIPLE SCLEROSIS [None]
  - PAIN [None]
